FAERS Safety Report 14789422 (Version 1)
Quarter: 2018Q2

REPORT INFORMATION
  Report Type: Spontaneous
  Country: US (occurrence: US)
  Receive Date: 20180423
  Receipt Date: 20180423
  Transmission Date: 20180711
  Serious: No
  Sender: FDA-Public Use
  Company Number: US-TEVA-812924ACC

PATIENT

DRUGS (1)
  1. PRAVASTATIN. [Suspect]
     Active Substance: PRAVASTATIN

REACTIONS (7)
  - Peripheral swelling [Not Recovered/Not Resolved]
  - Dyspnoea [Unknown]
  - Abdominal distension [Not Recovered/Not Resolved]
  - Hallucination [Unknown]
  - Swelling face [Not Recovered/Not Resolved]
  - Dysarthria [Unknown]
  - Insomnia [Not Recovered/Not Resolved]
